FAERS Safety Report 9718432 (Version 1)
Quarter: 2013Q4

REPORT INFORMATION
  Report Type: Not Available
  Country: US (occurrence: US)
  Receive Date: 20131125
  Receipt Date: 20131125
  Transmission Date: 20140711
  Serious: No
  Sender: FDA-Public Use
  Company Number: US-VIVUS-2013V1000576

PATIENT
  Age: 47 Year
  Sex: Female
  Weight: 93.98 kg

DRUGS (4)
  1. QSYMIA 3.75MG/23MG [Suspect]
     Indication: WEIGHT DECREASED
     Route: 048
     Dates: start: 20130715, end: 20130728
  2. QSYMIA 7.5MG/46MG [Suspect]
     Indication: WEIGHT DECREASED
     Route: 048
     Dates: start: 20130729
  3. LEXAPRO [Concomitant]
     Indication: ANXIETY
     Dosage: STARTED 3 YEARS AGO
     Route: 048
     Dates: start: 2010
  4. UNSPECIFIED OVER THE COUNTER HEADACHE MEDICATION [Concomitant]
     Indication: HEADACHE

REACTIONS (4)
  - Hypoaesthesia [Not Recovered/Not Resolved]
  - Paraesthesia [Not Recovered/Not Resolved]
  - Headache [Not Recovered/Not Resolved]
  - Nausea [Not Recovered/Not Resolved]
